FAERS Safety Report 23519077 (Version 1)
Quarter: 2024Q1

REPORT INFORMATION
  Report Type: Spontaneous
  Country: GB (occurrence: GB)
  Receive Date: 20240213
  Receipt Date: 20240213
  Transmission Date: 20240409
  Serious: Yes (Other)
  Sender: FDA-Public Use
  Company Number: GB-PFIZER INC-PV202400016718

PATIENT
  Age: 8 Decade
  Sex: Male

DRUGS (2)
  1. ERTAPENEM SODIUM [Suspect]
     Active Substance: ERTAPENEM SODIUM
     Dosage: 1 G, 1X/DAY
  2. MEROPENEM [Suspect]
     Active Substance: MEROPENEM
     Dosage: 1 G, 3X/DAY

REACTIONS (7)
  - Encephalopathy [Recovering/Resolving]
  - Delirium [Recovering/Resolving]
  - Hallucination [Recovering/Resolving]
  - Disorientation [Recovering/Resolving]
  - Insomnia [Recovering/Resolving]
  - Decreased appetite [Recovering/Resolving]
  - Dyskinesia [Recovering/Resolving]
